FAERS Safety Report 5977000-3 (Version None)
Quarter: 2008Q4

REPORT INFORMATION
  Report Type: 
  Country: None (occurrence: None)
  Receive Date: 20081203
  Receipt Date: 20080305
  Transmission Date: 20090506
  Serious: Yes (Other)
  Sender: FDA-Public Use
  Company Number: US-AMGEN-QUU266108

PATIENT
  Sex: Female

DRUGS (3)
  1. ENBREL [Suspect]
     Indication: RHEUMATOID ARTHRITIS
     Route: 058
     Dates: start: 20060201
  2. METHOTREXATE [Concomitant]
     Route: 048
     Dates: start: 19900101
  3. LEFLUNOMIDE [Concomitant]
     Route: 048
     Dates: start: 19990101

REACTIONS (1)
  - SQUAMOUS CELL CARCINOMA OF SKIN [None]
